FAERS Safety Report 18970588 (Version 2)
Quarter: 2021Q2

REPORT INFORMATION
  Report Type: Report from Study
  Country: US (occurrence: US)
  Receive Date: 20210305
  Receipt Date: 20210402
  Transmission Date: 20210717
  Serious: Yes (Death, Other)
  Sender: FDA-Public Use
  Company Number: US-ACADIA PHARMACEUTICALS INC.-ACA-2021-PIM-000566

PATIENT
  Age: 94 Year
  Sex: Female
  Weight: 39 kg

DRUGS (7)
  1. NUPLAZID [Suspect]
     Active Substance: PIMAVANSERIN TARTRATE
     Indication: PARKINSON^S DISEASE PSYCHOSIS
     Dosage: 34 MILLIGRAM, QD AT BEDTIME
     Route: 048
     Dates: start: 20200724, end: 20210206
  2. NUEDEXTA [DEXTROMETHORPHAN HYDROBROMIDE MONOHYDRATE;QUINIDINE SULFATE [Concomitant]
     Indication: HALLUCINATION
     Dosage: 20?10MG DAILY
     Route: 048
     Dates: start: 20200629, end: 20210206
  3. MIRTAZAPINE. [Concomitant]
     Active Substance: MIRTAZAPINE
     Indication: ANXIETY
     Dosage: 7.5 MILLIGRAM, QD
     Route: 048
     Dates: start: 20200722, end: 20210206
  4. RYTARY [Concomitant]
     Active Substance: CARBIDOPA\LEVODOPA
     Indication: PARKINSON^S DISEASE
     Dosage: 195 MILLIGRAM, 4 TIMES DAILY
     Route: 048
     Dates: start: 20200914, end: 20210206
  5. NUPLAZID [Suspect]
     Active Substance: PIMAVANSERIN TARTRATE
     Indication: HALLUCINATION
  6. EXELON [Concomitant]
     Active Substance: RIVASTIGMINE TARTRATE
     Indication: HALLUCINATION
     Dosage: 13.3 MILLIGRAM, QD
     Route: 062
     Dates: start: 20201130, end: 20210206
  7. RYTARY [Concomitant]
     Active Substance: CARBIDOPA\LEVODOPA
     Dosage: 95 MG 1 DAILY PRN
     Route: 048
     Dates: start: 20200914, end: 20210206

REACTIONS (1)
  - Death [Recovered/Resolved]

NARRATIVE: CASE EVENT DATE: 20210206
